FAERS Safety Report 7805451-0 (Version None)
Quarter: 2011Q4

REPORT INFORMATION
  Report Type: 
  Country: None (occurrence: None)
  Receive Date: 20111010
  Receipt Date: 20110927
  Transmission Date: 20120403
  Serious: Yes (Other)
  Sender: FDA-Public Use
  Company Number: PHEH2011US04730

PATIENT
  Sex: Female

DRUGS (2)
  1. GILENYA [Suspect]
     Indication: MULTIPLE SCLEROSIS
     Dosage: 0.5 MG, QD
     Route: 048
     Dates: start: 20110825, end: 20110826
  2. COPAXONE [Concomitant]
     Dosage: UNK UKN, UNK

REACTIONS (3)
  - CHEST PAIN [None]
  - HEART RATE DECREASED [None]
  - SWOLLEN TONGUE [None]
